FAERS Safety Report 18354585 (Version 1)
Quarter: 2020Q4

REPORT INFORMATION
  Report Type: Spontaneous
  Country: US (occurrence: US)
  Receive Date: 20201007
  Receipt Date: 20201007
  Transmission Date: 20210114
  Serious: No
  Sender: FDA-Public Use
  Company Number: US-BION-008229

PATIENT
  Age: 41 Year
  Sex: Female

DRUGS (2)
  1. BIONPHARMA^S PROGESTERONE [Suspect]
     Active Substance: PROGESTERONE
     Indication: SHORTENED CERVIX
     Dosage: SHE HAD USED WHITE PILLS DURING ONE MONTH?DOSE: INSERT 1 CAPSULE VAGINALLY EVERY NIGHT AT BEDTIME
     Route: 067
     Dates: start: 201903
  2. ERGOCALCIFEROL. [Concomitant]
     Active Substance: ERGOCALCIFEROL
     Indication: VITAMIN D DECREASED
     Dosage: DAILY DOSE: 1 CAPSULE
     Dates: start: 201903

REACTIONS (5)
  - Incorrect route of product administration [Not Recovered/Not Resolved]
  - Contraindicated product administered [Not Recovered/Not Resolved]
  - Product use in unapproved indication [Not Recovered/Not Resolved]
  - Product prescribing error [Not Recovered/Not Resolved]
  - Maternal exposure during pregnancy [Unknown]
